FAERS Safety Report 10609893 (Version 1)
Quarter: 2014Q4

REPORT INFORMATION
  Report Type: Spontaneous
  Country: US (occurrence: None)
  Receive Date: 20141124
  Receipt Date: 20141124
  Transmission Date: 20150529
  Serious: Yes (Hospitalization)
  Sender: FDA-Public Use
  Company Number: PR 2109

PATIENT
  Age: 63 Year
  Sex: Female

DRUGS (6)
  1. CYANOCOBALAMIN. [Concomitant]
     Active Substance: CYANOCOBALAMIN
  2. ZIOPTAN [Suspect]
     Active Substance: TAFLUPROST
     Indication: GLAUCOMA
     Dates: start: 20130107
  3. ESTAZOLAM. [Concomitant]
     Active Substance: ESTAZOLAM
  4. SIMVASTATIN. [Concomitant]
     Active Substance: SIMVASTATIN
  5. HYALURONATE SODIUM [Concomitant]
     Active Substance: HYALURONATE SODIUM
  6. URSODIOL. [Concomitant]
     Active Substance: URSODIOL

REACTIONS (2)
  - Cholelithiasis [None]
  - Blepharitis [None]

NARRATIVE: CASE EVENT DATE: 20130211
